FAERS Safety Report 8078439-5 (Version None)
Quarter: 2012Q1

REPORT INFORMATION
  Report Type: 
  Country: None (occurrence: None)
  Receive Date: 20120127
  Receipt Date: 20120127
  Transmission Date: 20120608
  Serious: Yes (Other)
  Sender: FDA-Public Use
  Company Number: None

PATIENT
  Age: 56 Year
  Sex: Male
  Weight: 78.2 kg

DRUGS (12)
  1. BACTRIM DS [Concomitant]
  2. COLACE [Concomitant]
  3. DEXAMETHASONE [Suspect]
     Indication: MULTIPLE MYELOMA
     Dosage: 20MGPODAYS1,2,3,4,8,9.11
     Route: 048
     Dates: start: 20100618, end: 20110318
  4. ACYCLOVIR [Concomitant]
  5. LORAZEPAM [Concomitant]
  6. CITALOPRAM HYDROBROMIDE [Concomitant]
  7. VELCADE [Suspect]
     Indication: MULTIPLE MYELOMA
     Dosage: 2.5 MG  DAYS, 1,4,8,11
     Dates: start: 20100618, end: 20110318
  8. PROCHLORPERAZINE [Concomitant]
  9. OXYCONTIN [Concomitant]
  10. LENALIDOMIDE [Suspect]
     Indication: MULTIPLE MYELOMA
     Dosage: 20 MG DAYS 1-14
     Dates: start: 20100618, end: 20110318
  11. ASPIRIN [Concomitant]
  12. VORINOSTAT 200 MG [Suspect]
     Indication: MULTIPLE MYELOMA
     Dosage: 200 MG PO DAYS 1-14
     Route: 048
     Dates: start: 20100618, end: 20110318

REACTIONS (3)
  - COLON CANCER [None]
  - LARGE INTESTINAL ULCER [None]
  - RECTAL HAEMORRHAGE [None]
